FAERS Safety Report 14683315 (Version 1)
Quarter: 2018Q1

REPORT INFORMATION
  Report Type: Spontaneous
  Country: US (occurrence: US)
  Receive Date: 20180326
  Receipt Date: 20180326
  Transmission Date: 20180509
  Serious: No
  Sender: FDA-Public Use
  Company Number: None

PATIENT
  Age: 63 Year
  Sex: Male
  Weight: 70.31 kg

DRUGS (4)
  1. DUPIXENT [Suspect]
     Active Substance: DUPILUMAB
     Indication: DERMATITIS ATOPIC
     Dosage: DOSE - 1ST: 300MG X 2 (600) SUBSEQUENT 300 MG X 1?ROUTE - INJECTION ?EVERY 14 DAYS
     Dates: start: 20170802, end: 20170816
  2. CLOBETASOL PROPIONATE (FOAM + OINTMENT) [Concomitant]
  3. FISH OIL [Concomitant]
     Active Substance: FISH OIL
  4. SLO-NIACIN [Concomitant]
     Active Substance: NIACIN

REACTIONS (11)
  - Ocular hyperaemia [None]
  - Eye pruritus [None]
  - Blepharitis [None]
  - Drug ineffective [None]
  - Swelling face [None]
  - Sunburn [None]
  - Skin disorder [None]
  - Erythema [None]
  - Paraesthesia [None]
  - Skin exfoliation [None]
  - Eye swelling [None]

NARRATIVE: CASE EVENT DATE: 20170816
